FAERS Safety Report 14685007 (Version 2)
Quarter: 2018Q2

REPORT INFORMATION
  Report Type: Spontaneous
  Country: US (occurrence: US)
  Receive Date: 20180327
  Receipt Date: 20180628
  Transmission Date: 20180711
  Serious: No
  Sender: FDA-Public Use
  Company Number: US-CLOVIS ONCOLOGY-CLO-2018-000015

PATIENT
  Age: 69 Year
  Sex: Female

DRUGS (13)
  1. FISH OIL GUMMY [Concomitant]
     Indication: PRODUCT USED FOR UNKNOWN INDICATION
     Dosage: UNK
  2. RUBRACA [Suspect]
     Active Substance: RUCAPARIB CAMSYLATE
     Dosage: 600 MG, BID
     Route: 048
  3. RUBRACA [Suspect]
     Active Substance: RUCAPARIB CAMSYLATE
     Dosage: 300 MG, BID
     Dates: start: 2018, end: 2018
  4. VITAMIN B12 [Concomitant]
     Active Substance: CYANOCOBALAMIN
     Indication: PERNICIOUS ANAEMIA
     Dosage: UNK
     Route: 065
  5. RUBRACA [Suspect]
     Active Substance: RUCAPARIB CAMSYLATE
     Dosage: 300 MG, QD
     Route: 048
     Dates: start: 20180105
  6. COMPAZINE [Concomitant]
     Active Substance: PROCHLORPERAZINE MALEATE
     Indication: NAUSEA
     Dosage: UNK, PRN
     Route: 065
  7. BREO ELLIPTA [Concomitant]
     Active Substance: FLUTICASONE FUROATE\VILANTEROL TRIFENATATE
     Indication: ASTHMA
     Dosage: ONCE EVERY 24HOURS
     Route: 065
  8. LEVOTHYROXINE. [Concomitant]
     Active Substance: LEVOTHYROXINE
     Indication: THYROID DISORDER
     Dosage: UNK
     Route: 065
  9. RUBRACA [Suspect]
     Active Substance: RUCAPARIB CAMSYLATE
     Dosage: ONE PILL EVERY OTHER DAY
     Route: 048
     Dates: start: 20180122
  10. RUBRACA [Suspect]
     Active Substance: RUCAPARIB CAMSYLATE
     Dosage: TWO 300 MG IN AM AND ONE IN PM
     Route: 048
  11. ZOMIG [Suspect]
     Active Substance: ZOLMITRIPTAN
     Indication: MIGRAINE
     Dosage: 5 MG, PRN
     Route: 002
  12. RUBRACA [Suspect]
     Active Substance: RUCAPARIB CAMSYLATE
     Indication: OVARIAN CANCER STAGE IV
     Dosage: 600 MG, BID EVERY 12 HOURS
     Dates: start: 2018
  13. RUBRACA [Suspect]
     Active Substance: RUCAPARIB CAMSYLATE
     Dosage: 300 MG IN THE AM, 600 MG AT NIGHT
     Dates: start: 201803

REACTIONS (31)
  - Carbohydrate antigen 125 increased [Recovering/Resolving]
  - Respiratory tract congestion [Recovering/Resolving]
  - Lacrimation increased [Recovered/Resolved]
  - Constipation [Recovered/Resolved]
  - Thirst [Unknown]
  - Hypersomnia [Unknown]
  - Hunger [Unknown]
  - Bronchitis [Unknown]
  - Migraine [Not Recovered/Not Resolved]
  - Asthma [Unknown]
  - Decreased appetite [Recovered/Resolved]
  - Headache [Recovered/Resolved]
  - Alopecia [Unknown]
  - Rhinorrhoea [Recovered/Resolved]
  - Fatigue [Not Recovered/Not Resolved]
  - Dizziness [Recovered/Resolved]
  - Prescribed underdose [Unknown]
  - Hepatic enzyme increased [Unknown]
  - Nasopharyngitis [Unknown]
  - Pruritus [Unknown]
  - Nausea [Unknown]
  - Musculoskeletal stiffness [Unknown]
  - Influenza [Unknown]
  - Pyrexia [Recovered/Resolved]
  - Hot flush [Not Recovered/Not Resolved]
  - Euphoric mood [Unknown]
  - Cough [Unknown]
  - Bone pain [Not Recovered/Not Resolved]
  - Faecaloma [Unknown]
  - Pain [Recovered/Resolved]
  - Arthralgia [Not Recovered/Not Resolved]

NARRATIVE: CASE EVENT DATE: 2018
